FAERS Safety Report 9462104 (Version 1)
Quarter: 2013Q3

REPORT INFORMATION
  Report Type: Spontaneous
  Country: DE (occurrence: DE)
  Receive Date: 20130816
  Receipt Date: 20130816
  Transmission Date: 20140515
  Serious: Yes (Other)
  Sender: FDA-Public Use
  Company Number: DE-ELI_LILLY_AND_COMPANY-DE201308002855

PATIENT
  Age: 0 Day
  Sex: Female

DRUGS (7)
  1. ZYPREXA [Suspect]
     Indication: PSYCHOTIC DISORDER
     Dosage: 5 MG, QD
     Route: 064
  2. ZYPREXA [Suspect]
     Indication: DEPRESSION
  3. VENLAFAXIN [Suspect]
     Indication: DEPRESSION
     Dosage: 150 MG, QD
     Route: 064
  4. VENLAFAXIN [Suspect]
     Indication: PSYCHOTIC DISORDER
     Dosage: 75 MG, QD
     Route: 064
  5. QUETIAPINE [Concomitant]
     Indication: DEPRESSION
     Dosage: 300 MG, QD
     Route: 064
  6. QUETIAPINE [Concomitant]
     Indication: PSYCHOTIC DISORDER
     Dosage: 150 MG, QD
     Route: 064
  7. INSULIN [Concomitant]
     Dosage: 1 DF, UNKNOWN
     Route: 064

REACTIONS (2)
  - Premature baby [Recovered/Resolved]
  - Maternal exposure during pregnancy [Recovered/Resolved]
